FAERS Safety Report 24613730 (Version 4)
Quarter: 2024Q4

REPORT INFORMATION
  Report Type: Report from Study
  Country: GR (occurrence: GR)
  Receive Date: 20241113
  Receipt Date: 20241225
  Transmission Date: 20250115
  Serious: Yes (Death, Hospitalization, Other)
  Sender: ABBVIE
  Company Number: GR-ABBVIE-5996735

PATIENT
  Age: 72 Year
  Sex: Male

DRUGS (6)
  1. CARBIDOPA\LEVODOPA [Suspect]
     Active Substance: CARBIDOPA\LEVODOPA
     Indication: Parkinson^s disease
     Dosage: MORNING DOSE: 9.5ML; CONTINUOUS RATE: 4.5ML/H; EXTRA DOSE: 5.5ML
     Route: 050
     Dates: start: 20220928
  2. CARBIDOPA\LEVODOPA [Suspect]
     Active Substance: CARBIDOPA\LEVODOPA
     Dosage: MORNING DOSE: 9.5ML; CONTINUOUS RATE: 4.5ML/H; EXTRA DOSE: 5.5ML, FIRST ADMIN DATE WAS 2024
     Route: 050
     Dates: end: 20241116
  3. CARBIDOPA\LEVODOPA [Suspect]
     Active Substance: CARBIDOPA\LEVODOPA
     Dosage: MORNING DOSE: 10.0ML; CONTINUOUS RATE: 3.6ML/H; EXTRA DOSE: 3.0ML
     Route: 050
     Dates: start: 20241120
  4. CARBIDOPA\LEVODOPA [Suspect]
     Active Substance: CARBIDOPA\LEVODOPA
     Dosage: MORNING DOSE: 10.0ML; CONTINUOUS RATE: 3.6ML/H; EXTRA DOSE: 3.0ML
     Route: 050
  5. NEUPRO [Concomitant]
     Active Substance: ROTIGOTINE
     Indication: Parkinson^s disease
     Route: 062
  6. BENSERAZIDE HYDROCHLORIDE\LEVODOPA [Concomitant]
     Active Substance: BENSERAZIDE HYDROCHLORIDE\LEVODOPA
     Indication: Parkinson^s disease
     Dosage: LEVODOPA AND BENSERAZIDE
     Route: 048

REACTIONS (10)
  - Death [Fatal]
  - Salivary hypersecretion [Not Recovered/Not Resolved]
  - Dysphagia [Not Recovered/Not Resolved]
  - Myopathy [Not Recovered/Not Resolved]
  - Cough [Not Recovered/Not Resolved]
  - Hypotonia [Not Recovered/Not Resolved]
  - Oxygen saturation abnormal [Not Recovered/Not Resolved]
  - Lung disorder [Not Recovered/Not Resolved]
  - Hypercapnia [Not Recovered/Not Resolved]
  - Product quality issue [Unknown]

NARRATIVE: CASE EVENT DATE: 20240101
